FAERS Safety Report 5318472-7 (Version None)
Quarter: 2007Q2

REPORT INFORMATION
  Report Type: 
  Country: None (occurrence: None)
  Receive Date: 20070501
  Receipt Date: 20050302
  Transmission Date: 20071010
  Serious: Yes (Hospitalization)
  Sender: FDA-Public Use
  Company Number: 184650

PATIENT
  Age: 41 Year
  Sex: Female
  Weight: 45 kg

DRUGS (2)
  1. AVONEX [Suspect]
     Indication: MULTIPLE SCLEROSIS
     Dosage: 30 UG; QW; IM
     Route: 030
     Dates: start: 20030827, end: 20031003
  2. PARACETAMOL [Concomitant]

REACTIONS (4)
  - CYTOLYTIC HEPATITIS [None]
  - DEPRESSION [None]
  - HEADACHE [None]
  - INSOMNIA [None]
